FAERS Safety Report 9839763 (Version 2)
Quarter: 2014Q2

REPORT INFORMATION
  Report Type: Spontaneous
  Country: US (occurrence: US)
  Receive Date: 20140124
  Receipt Date: 20140616
  Transmission Date: 20141212
  Serious: No
  Sender: FDA-Public Use
  Company Number: US-BIOGENIDEC-2014BI006021

PATIENT
  Age: 39 Year
  Sex: Female

DRUGS (12)
  1. TECFIDERA [Suspect]
     Indication: MULTIPLE SCLEROSIS
     Route: 048
     Dates: start: 20131004, end: 20131010
  2. TECFIDERA [Suspect]
     Indication: MULTIPLE SCLEROSIS
     Route: 048
     Dates: start: 20131011, end: 20140111
  3. TECFIDERA [Suspect]
     Indication: MULTIPLE SCLEROSIS
     Route: 048
     Dates: start: 20131005, end: 20131011
  4. TECFIDERA [Suspect]
     Indication: MULTIPLE SCLEROSIS
     Route: 048
     Dates: start: 20131012
  5. B COMPLEX-B12 [Concomitant]
  6. BACLOFEN [Concomitant]
  7. BIOTIN 5000 [Concomitant]
  8. DIAZEPAM [Concomitant]
  9. FOCALIN XR [Concomitant]
  10. HYDROCODONE-ACETAMINOPHEN [Concomitant]
  11. LIPITOR [Concomitant]
  12. ROBAXIN-750 [Concomitant]

REACTIONS (4)
  - Drug dose omission [Not Recovered/Not Resolved]
  - Dyspnoea [Not Recovered/Not Resolved]
  - Urticaria [Not Recovered/Not Resolved]
  - Flushing [Recovered/Resolved]
